FAERS Safety Report 17696478 (Version 2)
Quarter: 2021Q1

REPORT INFORMATION
  Report Type: Spontaneous
  Country: US (occurrence: US)
  Receive Date: 20200423
  Receipt Date: 20210119
  Transmission Date: 20210419
  Serious: Yes (Other)
  Sender: FDA-Public Use
  Company Number: US-ASTRAZENECA-2020SE53492

PATIENT
  Sex: Female
  Weight: 65.8 kg

DRUGS (42)
  1. VIOXX [Concomitant]
     Active Substance: ROFECOXIB
  2. ACYCLOVIR. [Concomitant]
     Active Substance: ACYCLOVIR
  3. ZOVIRAX [Concomitant]
     Active Substance: ACYCLOVIR
  4. DILANTIN [Concomitant]
     Active Substance: PHENYTOIN
  5. MYLANTA [Concomitant]
     Active Substance: ALUMINUM HYDROXIDE\DIMETHICONE\MAGNESIUM HYDROXIDE
  6. ZANTAC [Concomitant]
     Active Substance: RANITIDINE HYDROCHLORIDE
  7. AMPICILLIN [Concomitant]
     Active Substance: AMPICILLIN
  8. QUININE [Concomitant]
     Active Substance: QUININE
  9. MEVACOR [Concomitant]
     Active Substance: LOVASTATIN
  10. VITAMIN B12 [Concomitant]
     Active Substance: CYANOCOBALAMIN
     Indication: SUPPLEMENTATION THERAPY
  11. PEPCID AC [Concomitant]
     Active Substance: FAMOTIDINE
  12. MAALOX ANTACID [Concomitant]
     Active Substance: ALUMINUM HYDROXIDE\DIMETHICONE\MAGNESIUM HYDROXIDE
  13. PRILOSEC [Suspect]
     Active Substance: OMEPRAZOLE MAGNESIUM
     Indication: GASTROOESOPHAGEAL REFLUX DISEASE
     Dosage: GENERIC
     Route: 065
     Dates: start: 20110907, end: 20190804
  14. OXYMORPHONE [Concomitant]
     Active Substance: OXYMORPHONE
  15. ULTRAM [Concomitant]
     Active Substance: TRAMADOL HYDROCHLORIDE
  16. LEVAQUIN [Concomitant]
     Active Substance: LEVOFLOXACIN
  17. TRIAMTERENE. [Concomitant]
     Active Substance: TRIAMTERENE
  18. PROTONIX [Suspect]
     Active Substance: PANTOPRAZOLE SODIUM
     Route: 065
     Dates: start: 199701, end: 201703
  19. AMOXICILLIN. [Concomitant]
     Active Substance: AMOXICILLIN
  20. LOVASTATIN. [Concomitant]
     Active Substance: LOVASTATIN
  21. ALLOPURINOL. [Concomitant]
     Active Substance: ALLOPURINOL
  22. ZOCOR [Concomitant]
     Active Substance: SIMVASTATIN
  23. BENADRYL [Concomitant]
     Active Substance: DIPHENHYDRAMINE HYDROCHLORIDE
     Indication: HYPERSENSITIVITY
  24. FAMOTIDINE. [Concomitant]
     Active Substance: FAMOTIDINE
     Dates: start: 20170426, end: 20190416
  25. NEXIUM [Suspect]
     Active Substance: ESOMEPRAZOLE MAGNESIUM
     Indication: GASTROOESOPHAGEAL REFLUX DISEASE
     Route: 048
     Dates: start: 199701, end: 201703
  26. PRILOSEC OTC [Suspect]
     Active Substance: OMEPRAZOLE MAGNESIUM
     Route: 048
     Dates: start: 199701, end: 201703
  27. KEFLEX [Concomitant]
     Active Substance: CEPHALEXIN
  28. NAPROXEM [Concomitant]
  29. TRAMADOL. [Concomitant]
     Active Substance: TRAMADOL
  30. CILOXAN [Concomitant]
     Active Substance: CIPROFLOXACIN HYDROCHLORIDE
  31. LIPITOR [Concomitant]
     Active Substance: ATORVASTATIN CALCIUM
  32. PEPTO?BISMOL [Concomitant]
     Active Substance: BISMUTH SUBSALICYLATE
  33. NEXIUM 24HR [Suspect]
     Active Substance: ESOMEPRAZOLE MAGNESIUM
     Route: 048
     Dates: start: 199701, end: 201703
  34. PRILOSEC [Suspect]
     Active Substance: OMEPRAZOLE MAGNESIUM
     Indication: GASTROOESOPHAGEAL REFLUX DISEASE
     Route: 048
     Dates: start: 199701, end: 201703
  35. PREVACID [Suspect]
     Active Substance: LANSOPRAZOLE
     Indication: GASTROOESOPHAGEAL REFLUX DISEASE
     Route: 065
     Dates: start: 199701, end: 201703
  36. CELEBREX [Concomitant]
     Active Substance: CELECOXIB
  37. MELOXICAM. [Concomitant]
     Active Substance: MELOXICAM
  38. ZITHROMAX [Concomitant]
     Active Substance: AZITHROMYCIN DIHYDRATE
  39. LOSARTAN. [Concomitant]
     Active Substance: LOSARTAN
  40. LITHIUM. [Concomitant]
     Active Substance: LITHIUM
  41. TUMS [Concomitant]
     Active Substance: CALCIUM CARBONATE
  42. GAVISCON [Concomitant]
     Active Substance: ALUMINUM HYDROXIDE\MAGNESIUM CARBONATE

REACTIONS (3)
  - Acute kidney injury [Unknown]
  - Renal failure [Not Recovered/Not Resolved]
  - Chronic kidney disease [Unknown]
